FAERS Safety Report 6135998-7 (Version None)
Quarter: 2009Q1

REPORT INFORMATION
  Report Type: 
  Country: None (occurrence: None)
  Receive Date: 20090330
  Receipt Date: 20090319
  Transmission Date: 20090719
  Serious: Yes (Death)
  Sender: FDA-Public Use
  Company Number: US-RANBAXY-2009RR-22679

PATIENT
  Age: 53 Year
  Sex: Male

DRUGS (6)
  1. OLANZAPINE [Suspect]
  2. AMITRIPTYLINE [Suspect]
  3. CHLORPROMAZINE [Suspect]
  4. TRAMADOL [Suspect]
  5. HYDROCODONE [Suspect]
  6. ZOLPIDEM TARTRATE [Suspect]

REACTIONS (1)
  - DRUG TOXICITY [None]
